FAERS Safety Report 4288587-3 (Version None)
Quarter: 2004Q1

REPORT INFORMATION
  Report Type: 
  Country: None (occurrence: None)
  Receive Date: 20040209
  Receipt Date: 20040202
  Transmission Date: 20041129
  Serious: Yes (Other)
  Sender: FDA-Public Use
  Company Number: JP-ROCHE-358018

PATIENT
  Age: 13 Year

DRUGS (1)
  1. TAMIFLU [Suspect]
     Route: 048
     Dates: start: 20040201, end: 20040201

REACTIONS (1)
  - BLOOD PRESSURE DECREASED [None]
